FAERS Safety Report 9495655 (Version 1)
Quarter: 2013Q3

REPORT INFORMATION
  Report Type: Spontaneous
  Country: FR (occurrence: FR)
  Receive Date: 20130903
  Receipt Date: 20130903
  Transmission Date: 20140515
  Serious: Yes (Hospitalization)
  Sender: FDA-Public Use
  Company Number: FR-JNJFOC-20130900761

PATIENT
  Age: 74 Year
  Sex: Male

DRUGS (9)
  1. XARELTO [Suspect]
     Indication: HIP ARTHROPLASTY
     Route: 048
     Dates: start: 20130711, end: 20130718
  2. XARELTO [Suspect]
     Indication: THROMBOSIS PROPHYLAXIS
     Route: 048
     Dates: start: 20130711, end: 20130718
  3. ALLOPURINOL [Concomitant]
     Route: 065
  4. AVODART [Concomitant]
     Route: 065
  5. DIAMICRON [Concomitant]
     Route: 065
  6. INNOVAIR [Concomitant]
     Route: 065
  7. KALEORID [Concomitant]
     Route: 065
  8. LASILIX [Concomitant]
     Route: 065
     Dates: start: 1999
  9. OMEPRAZOLE [Concomitant]
     Route: 065

REACTIONS (2)
  - Post procedural haemorrhage [Recovering/Resolving]
  - Disease progression [Recovered/Resolved]
